FAERS Safety Report 11007739 (Version 2)
Quarter: 2015Q2

REPORT INFORMATION
  Report Type: Spontaneous
  Country: US (occurrence: US)
  Receive Date: 20150409
  Receipt Date: 20150525
  Transmission Date: 20150821
  Serious: No
  Sender: FDA-Public Use
  Company Number: US-JNJFOC-20110107115

PATIENT
  Age: 56 Year
  Sex: Male
  Weight: 90.72 kg

DRUGS (3)
  1. ANTICHOLESTEROL AGENT [Concomitant]
     Indication: BLOOD CHOLESTEROL
     Route: 048
  2. ANTI HYPERTENSIVE NOS [Concomitant]
     Indication: BLOOD PRESSURE
     Route: 048
  3. REMICADE [Suspect]
     Active Substance: INFLIXIMAB
     Indication: RHEUMATOID ARTHRITIS
     Route: 042
     Dates: start: 201102

REACTIONS (3)
  - Blood pressure increased [Recovered/Resolved]
  - Infusion related reaction [Recovered/Resolved]
  - Dizziness [Recovered/Resolved]

NARRATIVE: CASE EVENT DATE: 201101
